FAERS Safety Report 19582323 (Version 5)
Quarter: 2021Q4

REPORT INFORMATION
  Report Type: Spontaneous
  Country: PT (occurrence: PT)
  Receive Date: 20210720
  Receipt Date: 20211028
  Transmission Date: 20220303
  Serious: Yes (Hospitalization, Disabling, Other)
  Sender: FDA-Public Use
  Company Number: PT-MYLANLABS-2021M1038033

PATIENT
  Age: 79 Year
  Sex: Male

DRUGS (19)
  1. PANTOPRAZOLE [Suspect]
     Active Substance: PANTOPRAZOLE
     Indication: Product used for unknown indication
     Dosage: 20 MILLIGRAM, QD
     Route: 065
  2. PERINDOPRIL [Suspect]
     Active Substance: PERINDOPRIL
     Indication: Product used for unknown indication
     Dosage: 4 MILLIGRAM, QD
     Route: 065
  3. QUETIAPINE [Interacting]
     Active Substance: QUETIAPINE
     Indication: Insomnia
     Dosage: 50 MILLIGRAM, QD
  4. QUETIAPINE [Interacting]
     Active Substance: QUETIAPINE
     Dosage: 100 MILLIGRAM, QD
  5. QUETIAPINE [Interacting]
     Active Substance: QUETIAPINE
     Dosage: 200 MILLIGRAM, QD
  6. RISPERIDONE [Suspect]
     Active Substance: RISPERIDONE
     Indication: Psychotic disorder due to a general medical condition
     Dosage: 4 MILLIGRAM, QD
  7. RISPERIDONE [Suspect]
     Active Substance: RISPERIDONE
     Dosage: 1 MILLIGRAM, QD
  8. RISPERIDONE [Suspect]
     Active Substance: RISPERIDONE
     Dosage: UNK
  9. ROSUVASTATIN [Suspect]
     Active Substance: ROSUVASTATIN
     Indication: Product used for unknown indication
     Dosage: 20 MILLIGRAM, QD
  10. VALPROIC ACID [Interacting]
     Active Substance: VALPROIC ACID
     Indication: Psychotic disorder due to a general medical condition
     Dosage: 800 MILLIGRAM, QD
  11. VALPROIC ACID [Interacting]
     Active Substance: VALPROIC ACID
     Indication: Behaviour disorder
     Dosage: 500 MILLIGRAM, QD
  12. PRADAXA [Suspect]
     Active Substance: DABIGATRAN ETEXILATE MESYLATE
     Indication: Product used for unknown indication
     Dosage: 110 MILLIGRAM, BID
  13. FUROSEMIDE [Suspect]
     Active Substance: FUROSEMIDE
     Indication: Product used for unknown indication
     Dosage: 20 MILLIGRAM, QD
  14. TRAZODONE [Suspect]
     Active Substance: TRAZODONE HYDROCHLORIDE
     Indication: Hypertension
     Dosage: 50 MILLIGRAM, QD
  15. DABIGATRAN [Concomitant]
     Active Substance: DABIGATRAN
     Indication: Dyslipidaemia
     Dosage: 110 MILLIGRAM, QD
  16. FUROSEMIDE [Concomitant]
     Active Substance: FUROSEMIDE
     Indication: Product used for unknown indication
     Dosage: UNK
  17. TRAZODONE [Concomitant]
     Active Substance: TRAZODONE HYDROCHLORIDE
     Indication: Hypertension
     Dosage: UNK
  18. RISPERIDONE [Concomitant]
     Active Substance: RISPERIDONE
     Indication: Psychotic disorder
     Dosage: 1 MILLIGRAM, QD
  19. RISPERIDONE [Concomitant]
     Active Substance: RISPERIDONE
     Dosage: 4 MILLIGRAM, QD

REACTIONS (15)
  - Insomnia [Unknown]
  - Psychotic disorder due to a general medical condition [Recovering/Resolving]
  - Dysarthria [Recovering/Resolving]
  - Ischaemia [Unknown]
  - Salivary hypersecretion [Unknown]
  - Aggression [Recovering/Resolving]
  - Platelet count increased [Unknown]
  - Thrombocytopenia [Recovered/Resolved]
  - Psychotic symptom [Unknown]
  - Psychomotor retardation [Unknown]
  - Drug ineffective [Recovered/Resolved]
  - Psychomotor skills impaired [Recovered/Resolved]
  - Condition aggravated [Recovered/Resolved]
  - Off label use [Unknown]
  - Labelled drug-drug interaction medication error [Unknown]
